FAERS Safety Report 6828031-2 (Version None)
Quarter: 2010Q3

REPORT INFORMATION
  Report Type: 
  Country: None (occurrence: None)
  Receive Date: 20100709
  Receipt Date: 20100705
  Transmission Date: 20110219
  Serious: Yes (Death, Hospitalization, Other)
  Sender: FDA-Public Use
  Company Number: A0869392A

PATIENT
  Sex: Male
  Weight: 59.6 kg

DRUGS (4)
  1. SERETIDE [Suspect]
     Indication: CHRONIC OBSTRUCTIVE PULMONARY DISEASE
     Dosage: 1PUFF TWICE PER DAY
     Dates: start: 20050101, end: 20100605
  2. OMEPRAZOLE [Concomitant]
  3. PAROXETINE HCL [Concomitant]
     Dosage: 10MG PER DAY
  4. DIGOXIN [Concomitant]

REACTIONS (6)
  - HYPERSENSITIVITY [None]
  - KIDNEY INFECTION [None]
  - PAIN IN EXTREMITY [None]
  - PERIPHERAL ARTERIAL OCCLUSIVE DISEASE [None]
  - RENAL FAILURE [None]
  - RESPIRATORY FAILURE [None]
